FAERS Safety Report 8244363-8 (Version None)
Quarter: 2012Q1

REPORT INFORMATION
  Report Type: 
  Country: None (occurrence: None)
  Receive Date: 20120329
  Receipt Date: 20120324
  Transmission Date: 20120608
  Serious: Yes (Hospitalization)
  Sender: FDA-Public Use
  Company Number: IN-PFIZER INC-2011299327

PATIENT
  Age: 60 Year
  Sex: Male

DRUGS (4)
  1. PANTOPRAZOLE [Concomitant]
     Dosage: 40 MG, 1X/DAY
     Route: 048
     Dates: start: 20111204
  2. ZANTAC [Concomitant]
     Dosage: 150 MG, 2X/DAY
     Route: 048
     Dates: start: 20111204
  3. SUTENT [Suspect]
     Indication: METASTATIC RENAL CELL CARCINOMA
     Dosage: 50 MG, 1X/DAY
     Route: 048
     Dates: start: 20111204
  4. SUTENT [Suspect]
     Dosage: 37.5 MG, 1X/DAY
     Route: 048
     Dates: start: 20120220, end: 20120316

REACTIONS (9)
  - DISEASE PROGRESSION [None]
  - BURNING SENSATION [None]
  - RASH GENERALISED [None]
  - MOUTH ULCERATION [None]
  - FATIGUE [None]
  - SKIN DISCOLOURATION [None]
  - ABDOMINAL PAIN UPPER [None]
  - METASTATIC RENAL CELL CARCINOMA [None]
  - DECUBITUS ULCER [None]
